FAERS Safety Report 14579852 (Version 1)
Quarter: 2018Q1

REPORT INFORMATION
  Report Type: Spontaneous
  Country: FR (occurrence: FR)
  Receive Date: 20180228
  Receipt Date: 20180228
  Transmission Date: 20180509
  Serious: Yes (Hospitalization)
  Sender: FDA-Public Use
  Company Number: FR-UCBSA-2018007340

PATIENT
  Age: 25 Year
  Sex: Female

DRUGS (4)
  1. FYCOMPA [Interacting]
     Active Substance: PERAMPANEL
     Indication: EPILEPSY
     Dosage: 4 MG DAILY DOSE
     Route: 048
     Dates: start: 20170901, end: 20171026
  2. KEPPRA [Suspect]
     Active Substance: LEVETIRACETAM
     Indication: EPILEPSY
     Dosage: 3000 MG DAILY DOSE
     Route: 048
     Dates: start: 20130101
  3. FYCOMPA [Interacting]
     Active Substance: PERAMPANEL
     Dosage: 2MG DAILY DOSE
     Route: 048
     Dates: start: 20170901, end: 20170901
  4. LAMICTAL [Concomitant]
     Active Substance: LAMOTRIGINE
     Indication: EPILEPSY
     Dosage: 25 MG, UNK
     Route: 048

REACTIONS (5)
  - Irritability [Recovered/Resolved]
  - Suicide attempt [Recovered/Resolved]
  - Suicidal ideation [Recovered/Resolved]
  - Dizziness [Recovered/Resolved]
  - Drug interaction [Recovered/Resolved]

NARRATIVE: CASE EVENT DATE: 20170901
